FAERS Safety Report 9416957 (Version 1)
Quarter: 2013Q3

REPORT INFORMATION
  Report Type: Spontaneous
  Country: US (occurrence: US)
  Receive Date: 20130724
  Receipt Date: 20130724
  Transmission Date: 20140515
  Serious: No
  Sender: FDA-Public Use
  Company Number: US-009507513-1303USA012111

PATIENT
  Sex: Female
  Weight: 49.89 kg

DRUGS (7)
  1. MIRALAX [Suspect]
     Indication: GASTRIC DISORDER
     Dosage: 5.67 G, QD
     Route: 048
     Dates: start: 2012, end: 2013
  2. MIRALAX [Suspect]
     Indication: FAECES HARD
  3. MIRALAX [Suspect]
     Indication: MEDICAL OBSERVATION
  4. NORVASC [Concomitant]
     Indication: HYPERTENSION
     Dosage: 10 MG, UNKNOWN
  5. LIPITOR [Concomitant]
     Indication: BLOOD CHOLESTEROL INCREASED
     Dosage: 20 MG, UNKNOWN
  6. LEXAPRO [Concomitant]
     Indication: TENSION
     Dosage: 10 MG, UNKNOWN
  7. AMBIEN [Concomitant]
     Indication: SLEEP DISORDER
     Dosage: 10 MG, UNKNOWN

REACTIONS (3)
  - Diarrhoea [Unknown]
  - Incorrect drug administration duration [Unknown]
  - Underdose [Unknown]
